FAERS Safety Report 21259993 (Version 2)
Quarter: 2022Q4

REPORT INFORMATION
  Report Type: Spontaneous
  Country: US (occurrence: US)
  Receive Date: 20220826
  Receipt Date: 20221017
  Transmission Date: 20230112
  Serious: Yes (Other)
  Sender: FDA-Public Use
  Company Number: US-ALXN-A202209978

PATIENT
  Sex: Female

DRUGS (1)
  1. SOLIRIS [Suspect]
     Active Substance: ECULIZUMAB
     Indication: Myasthenia gravis
     Dosage: UNK, ONCE IN EVERY MONTH/ONCE EVERY 4 TO 5 WEEKS
     Route: 065

REACTIONS (2)
  - Myasthenia gravis [Unknown]
  - Cardiac disorder [Unknown]
